APPROVED DRUG PRODUCT: DOXYCYCLINE
Active Ingredient: DOXYCYCLINE
Strength: EQ 100MG BASE
Dosage Form/Route: CAPSULE;ORAL
Application: A209165 | Product #002 | TE Code: AB
Applicant: ALEMBIC PHARMACEUTICALS LTD
Approved: Jul 28, 2017 | RLD: No | RS: No | Type: RX